FAERS Safety Report 20381283 (Version 2)
Quarter: 2022Q1

REPORT INFORMATION
  Report Type: Spontaneous
  Country: IT (occurrence: IT)
  Receive Date: 20220127
  Receipt Date: 20220225
  Transmission Date: 20220423
  Serious: Yes (Hospitalization, Other)
  Sender: FDA-Public Use
  Company Number: IT-AMGEN-ITASP2022010376

PATIENT

DRUGS (1)
  1. ADALIMUMAB [Suspect]
     Active Substance: ADALIMUMAB
     Indication: Colitis ulcerative
     Dosage: UNK
     Route: 065

REACTIONS (6)
  - Unevaluable event [Unknown]
  - Ill-defined disorder [Unknown]
  - Poisoning [Unknown]
  - Infection parasitic [Unknown]
  - Injury [Unknown]
  - Infection [Unknown]
